FAERS Safety Report 6840664-6 (Version None)
Quarter: 2010Q3

REPORT INFORMATION
  Report Type: 
  Country: None (occurrence: None)
  Receive Date: 20100713
  Receipt Date: 20100713
  Transmission Date: 20110219
  Serious: Yes (Hospitalization)
  Sender: FDA-Public Use
  Company Number: None

PATIENT
  Age: 82 Year
  Sex: Male
  Weight: 96.4 kg

DRUGS (2)
  1. VORINOSTAT 300MG DAILY X 14 Q 21 DAYS ORAL [Suspect]
     Indication: PANCREATIC CARCINOMA
     Dosage: 300MG DAILY X 14 Q 21 DAYS ORAL
     Route: 048
     Dates: start: 20091207
  2. CAPECITABINE 100MG [Suspect]
     Indication: PANCREATIC CARCINOMA
     Dosage: 1000MG BID X 14 D Q 21 DAYS ORAL
     Route: 048
     Dates: start: 20091207

REACTIONS (1)
  - CHOLANGITIS [None]
